FAERS Safety Report 16309449 (Version 1)
Quarter: 2019Q2

REPORT INFORMATION
  Report Type: Spontaneous
  Country: IT (occurrence: IT)
  Receive Date: 20190514
  Receipt Date: 20190514
  Transmission Date: 20190711
  Serious: Yes (Other)
  Sender: FDA-Public Use
  Company Number: IT-PFIZER INC-2019197356

PATIENT
  Age: 92 Year
  Sex: Female

DRUGS (1)
  1. ALPRAZOLAM. [Suspect]
     Active Substance: ALPRAZOLAM
     Dosage: 1 DF, SINGLE, ^PATIENT ASSUMES ERRONEOUSLY 1/4 OF ALPRAZOLAM BOTTLE^
     Route: 048
     Dates: start: 20190417, end: 20190417

REACTIONS (3)
  - Overdose [Recovering/Resolving]
  - Medication error [Recovering/Resolving]
  - Depressed level of consciousness [Recovering/Resolving]

NARRATIVE: CASE EVENT DATE: 20190417
